FAERS Safety Report 4678487-9 (Version None)
Quarter: 2005Q2

REPORT INFORMATION
  Report Type: 
  Country: None (occurrence: None)
  Receive Date: 20050531
  Receipt Date: 20050531
  Transmission Date: 20051028
  Serious: Yes (Death)
  Sender: FDA-Public Use
  Company Number: None

PATIENT
  Age: 62 Year
  Sex: Female

DRUGS (1)
  1. MS CONTIN [Suspect]
     Dosage: 30MG PO
     Route: 048

REACTIONS (7)
  - DIALYSIS [None]
  - HYPOTENSION [None]
  - INCREASED VISCOSITY OF BRONCHIAL SECRETION [None]
  - LETHARGY [None]
  - RESPIRATORY RATE DECREASED [None]
  - SEPSIS [None]
  - SPUTUM DISCOLOURED [None]
